FAERS Safety Report 13561817 (Version 1)
Quarter: 2017Q2

REPORT INFORMATION
  Report Type: Report from Study
  Country: US (occurrence: US)
  Receive Date: 20170518
  Receipt Date: 20170518
  Transmission Date: 20170830
  Serious: Yes (Hospitalization)
  Sender: FDA-Public Use
  Company Number: US-CELGENEUS-USA-20170402893

PATIENT
  Age: 75 Year
  Sex: Female
  Weight: 65.7 kg

DRUGS (2)
  1. GEMCITABINE [Suspect]
     Active Substance: GEMCITABINE\GEMCITABINE HYDROCHLORIDE
     Indication: PANCREATIC CARCINOMA
     Dosage: 1780 MILLIGRAM
     Route: 041
     Dates: start: 20170330
  2. ABRAXANE [Suspect]
     Active Substance: PACLITAXEL
     Indication: PANCREATIC CARCINOMA
     Dosage: 223 MILLIGRAM
     Route: 041
     Dates: start: 20170330

REACTIONS (2)
  - Syncope [Unknown]
  - Dyspnoea [Recovered/Resolved]

NARRATIVE: CASE EVENT DATE: 20170401
